FAERS Safety Report 5102568-9 (Version None)
Quarter: 2006Q3

REPORT INFORMATION
  Report Type: 
  Country: None (occurrence: None)
  Receive Date: 20060907
  Receipt Date: 20060825
  Transmission Date: 20061208
  Serious: Yes (Congenital Anomaly)
  Sender: FDA-Public Use
  Company Number: GXKR2006JP05364

PATIENT
  Sex: Male
  Weight: 2.9 kg

DRUGS (1)
  1. THIAMAZOLE (NGX) (THIAMAZOLE) UNKNOWN [Suspect]
     Dosage: TRANSPLACENTAL
     Route: 064

REACTIONS (5)
  - APLASIA CUTIS CONGENITA [None]
  - CONGENITAL HAIR DISORDER [None]
  - DRUG EXPOSURE DURING PREGNANCY [None]
  - SCAR [None]
  - SKULL MALFORMATION [None]
